FAERS Safety Report 8446998-6 (Version None)
Quarter: 2012Q2

REPORT INFORMATION
  Report Type: 
  Country: None (occurrence: None)
  Receive Date: 20120619
  Receipt Date: 20120606
  Transmission Date: 20120825
  Serious: Yes (Other)
  Sender: FDA-Public Use
  Company Number: FR-CELGENEUS-056-21880-12052510

PATIENT
  Sex: Female

DRUGS (4)
  1. REVLIMID [Suspect]
     Indication: MULTIPLE MYELOMA
     Dosage: 15 MILLIGRAM
     Route: 048
     Dates: start: 20120216, end: 20120311
  2. REVLIMID [Suspect]
     Dosage: 15 MILLIGRAM
     Route: 048
     Dates: start: 20120326
  3. KIOVIG [Concomitant]
     Indication: HYPOGAMMAGLOBULINAEMIA
     Dosage: 1 GRAM
     Route: 041
     Dates: start: 20120126
  4. GRANOCYTE [Concomitant]
     Indication: NEUTROPENIA
     Dosage: 4.8571 INTERNATIONAL UNITS THOUSANDS
     Route: 058
     Dates: start: 20120227

REACTIONS (1)
  - REFRACTORY CYTOPENIA WITH MULTILINEAGE DYSPLASIA [None]
